FAERS Safety Report 9875247 (Version 1)
Quarter: 2014Q1

REPORT INFORMATION
  Report Type: Other
  Country: US (occurrence: US)
  Receive Date: 20140206
  Receipt Date: 20140206
  Transmission Date: 20141002
  Serious: No
  Sender: FDA-Public Use
  Company Number: US-ACORDA-ACO_36514_2013

PATIENT
  Age: 56 Year
  Sex: Female

DRUGS (2)
  1. AMPYRA [Suspect]
     Indication: MULTIPLE SCLEROSIS
     Dosage: UNK,UNK
     Route: 065
  2. AVONEX [Concomitant]
     Indication: MULTIPLE SCLEROSIS
     Dosage: UNK,UNK
     Route: 065

REACTIONS (1)
  - Rash [Recovered/Resolved]
